FAERS Safety Report 7333738-7 (Version None)
Quarter: 2011Q1

REPORT INFORMATION
  Report Type: 
  Country: None (occurrence: None)
  Receive Date: 20110306
  Receipt Date: 20110209
  Transmission Date: 20110831
  Serious: Yes (Other)
  Sender: FDA-Public Use
  Company Number: US-BAYER-2011-013922

PATIENT
  Sex: Female
  Weight: 85 kg

DRUGS (2)
  1. PREDNISONE [Concomitant]
     Dosage: UNK
  2. ALEVE (CAPLET) [Suspect]
     Indication: PRODUCT USED FOR UNKNOWN INDICATION
     Dosage: 1 DF, UNK
     Route: 048

REACTIONS (6)
  - COLOUR BLINDNESS [None]
  - BURNING SENSATION [None]
  - OEDEMA PERIPHERAL [None]
  - ANAPHYLACTIC SHOCK [None]
  - BLINDNESS TRANSIENT [None]
  - SYNCOPE [None]
